FAERS Safety Report 18442385 (Version 1)
Quarter: 2020Q4

REPORT INFORMATION
  Report Type: Spontaneous
  Country: FR (occurrence: FR)
  Receive Date: 20201029
  Receipt Date: 20201029
  Transmission Date: 20210114
  Serious: Yes (Hospitalization)
  Sender: FDA-Public Use
  Company Number: FR-MYLANLABS-2020M1090080

PATIENT
  Age: 51 Year
  Sex: Male

DRUGS (8)
  1. DIFFU K [Concomitant]
     Active Substance: POTASSIUM CHLORIDE
     Indication: NAUSEA
     Dosage: UNK
     Dates: start: 20200619
  2. METOCLOPRAMIDE. [Concomitant]
     Active Substance: METOCLOPRAMIDE
     Indication: NAUSEA
     Dosage: UNK
     Dates: start: 202005
  3. AVELUMAB [Suspect]
     Active Substance: AVELUMAB
     Indication: BLADDER TRANSITIONAL CELL CARCINOMA
     Dosage: DURATION OF EACH CYCLE IS 3 WEEKS
  4. CARBOPLATIN. [Suspect]
     Active Substance: CARBOPLATIN
     Indication: BLADDER TRANSITIONAL CELL CARCINOMA
     Dosage: UNK, QD
     Route: 042
     Dates: start: 20200709, end: 20200807
  5. GEMCITABINE. [Suspect]
     Active Substance: GEMCITABINE
     Indication: BLADDER TRANSITIONAL CELL CARCINOMA
     Dosage: INTRAVENOUS INFUSION OVER 30 MINUTES ON DAYS 1 AND 8 OF EACH 21-DAY CYCLE, DAILY
     Route: 041
     Dates: start: 20200409, end: 20200807
  6. FUNGIZONE [Concomitant]
     Active Substance: AMPHOTERICIN B
     Indication: NAUSEA
     Dosage: UNK
     Dates: start: 20200619
  7. CISPLATIN. [Suspect]
     Active Substance: CISPLATIN
     Indication: BLADDER TRANSITIONAL CELL CARCINOMA
     Dosage: REGIMEN 1, DAILY
     Route: 041
     Dates: start: 20200409
  8. INDAPAMIDE. [Concomitant]
     Active Substance: INDAPAMIDE
     Indication: HYPERTENSION
     Dosage: UNK
     Dates: start: 2016

REACTIONS (2)
  - Off label use [Unknown]
  - Sepsis [Not Recovered/Not Resolved]

NARRATIVE: CASE EVENT DATE: 20200825
